FAERS Safety Report 17114083 (Version 1)
Quarter: 2019Q4

REPORT INFORMATION
  Report Type: Report from Study
  Country: US (occurrence: US)
  Receive Date: 20191205
  Receipt Date: 20191205
  Transmission Date: 20200122
  Serious: Yes (Other)
  Sender: FDA-Public Use
  Company Number: US-ROCHE-2485975

PATIENT
  Sex: Female

DRUGS (6)
  1. EVEROLIMUS. [Suspect]
     Active Substance: EVEROLIMUS
     Indication: FALLOPIAN TUBE CANCER
     Route: 065
  2. EVEROLIMUS. [Suspect]
     Active Substance: EVEROLIMUS
     Indication: MALIGNANT PERITONEAL NEOPLASM
  3. BEVACIZUMAB. [Suspect]
     Active Substance: BEVACIZUMAB
     Indication: MALIGNANT PERITONEAL NEOPLASM
  4. EVEROLIMUS. [Suspect]
     Active Substance: EVEROLIMUS
     Indication: OVARIAN CANCER RECURRENT
  5. BEVACIZUMAB. [Suspect]
     Active Substance: BEVACIZUMAB
     Indication: FALLOPIAN TUBE CANCER
     Route: 042
  6. BEVACIZUMAB. [Suspect]
     Active Substance: BEVACIZUMAB
     Indication: OVARIAN CANCER RECURRENT

REACTIONS (19)
  - Fistula [Unknown]
  - Mucosal inflammation [Unknown]
  - Nausea [Unknown]
  - Electrolyte imbalance [Unknown]
  - Thrombocytopenia [Unknown]
  - Vomiting [Unknown]
  - Neurotoxicity [Unknown]
  - Musculoskeletal toxicity [Unknown]
  - Hypertension [Unknown]
  - Neutropenia [Unknown]
  - Toxicity to various agents [Unknown]
  - Skin toxicity [Unknown]
  - Diarrhoea [Unknown]
  - Anaemia [Unknown]
  - Leukopenia [Unknown]
  - Proteinuria [Unknown]
  - Pain [Unknown]
  - Pneumonitis [Unknown]
  - Hypertriglyceridaemia [Unknown]
